FAERS Safety Report 5411897-0 (Version None)
Quarter: 2007Q3

REPORT INFORMATION
  Report Type: 
  Country: None (occurrence: None)
  Receive Date: 20070813
  Receipt Date: 20070802
  Transmission Date: 20080115
  Serious: Yes (Hospitalization, Other)
  Sender: FDA-Public Use
  Company Number: US-JNJFOC-20070801119

PATIENT
  Age: 29 Year
  Sex: Male

DRUGS (1)
  1. INVEGA [Suspect]
     Indication: MENTAL RETARDATION SEVERITY UNSPECIFIED
     Route: 048

REACTIONS (2)
  - BRONCHOPNEUMONIA [None]
  - EXTRAPYRAMIDAL DISORDER [None]
